FAERS Safety Report 9213849 (Version 1)
Quarter: 2013Q2

REPORT INFORMATION
  Report Type: Report from Study
  Country: CA (occurrence: CA)
  Receive Date: 20130405
  Receipt Date: 20130405
  Transmission Date: 20140414
  Serious: Yes (Other)
  Sender: FDA-Public Use
  Company Number: CA-JNJFOC-20130212188

PATIENT
  Sex: Male
  Weight: 70.5 kg

DRUGS (3)
  1. REMICADE [Suspect]
     Indication: CROHN^S DISEASE
     Dosage: 35TH INFUSION
     Route: 042
     Dates: start: 20121231
  2. REMICADE [Suspect]
     Indication: CROHN^S DISEASE
     Dosage: 36TH INFUSION
     Route: 042
     Dates: start: 20130218
  3. REMICADE [Suspect]
     Indication: CROHN^S DISEASE
     Route: 042
     Dates: start: 20080225

REACTIONS (3)
  - Abscess [Unknown]
  - Acne [Not Recovered/Not Resolved]
  - Dry skin [Not Recovered/Not Resolved]
